FAERS Safety Report 4367553-3 (Version None)
Quarter: 2004Q2

REPORT INFORMATION
  Report Type: 
  Country: None (occurrence: None)
  Receive Date: 20040601
  Receipt Date: 20040520
  Transmission Date: 20050107
  Serious: Yes (Hospitalization)
  Sender: FDA-Public Use
  Company Number: MY-MERCK-0405MYS00007

PATIENT
  Age: 78 Year
  Sex: Female

DRUGS (1)
  1. INVANZ [Suspect]
     Indication: CELLULITIS
     Route: 042

REACTIONS (1)
  - CELLULITIS [None]
